FAERS Safety Report 10429887 (Version 2)
Quarter: 2014Q3

REPORT INFORMATION
  Report Type: Spontaneous
  Country: DE (occurrence: DE)
  Receive Date: 20140904
  Receipt Date: 20140910
  Transmission Date: 20150326
  Serious: Yes (Hospitalization, Other)
  Sender: FDA-Public Use
  Company Number: DE-JNJFOC-20140821976

PATIENT
  Sex: Female
  Weight: 2.84 kg

DRUGS (3)
  1. CIPRALEX [Suspect]
     Active Substance: ESCITALOPRAM OXALATE
     Indication: SCHIZOAFFECTIVE DISORDER
     Route: 064
     Dates: start: 201303, end: 20140707
  2. RISPERDAL CONSTA [Suspect]
     Active Substance: RISPERIDONE
     Indication: SCHIZOAFFECTIVE DISORDER
     Route: 064
     Dates: start: 2009, end: 20140707
  3. CLOZAPIN [Suspect]
     Active Substance: CLOZAPINE
     Indication: SCHIZOAFFECTIVE DISORDER
     Route: 064
     Dates: start: 2009, end: 20140707

REACTIONS (3)
  - Foetal exposure during pregnancy [Recovered/Resolved]
  - Decreased activity [Recovered/Resolved]
  - Respiratory rate decreased [Recovered/Resolved]
